FAERS Safety Report 8682939 (Version 2)
Quarter: 2014Q2

REPORT INFORMATION
  Report Type: Spontaneous
  Country: FR (occurrence: FR)
  Receive Date: 20120725
  Receipt Date: 20140618
  Transmission Date: 20141212
  Serious: Yes (Hospitalization)
  Sender: FDA-Public Use
  Company Number: FR-GLAXOSMITHKLINE-B0801055A

PATIENT
  Age: 23 Year
  Sex: Female

DRUGS (5)
  1. LAMICTAL [Suspect]
     Indication: EPILEPSY
     Route: 048
     Dates: start: 20120404, end: 20120429
  2. AUGMENTIN [Suspect]
     Indication: ODYNOPHAGIA
     Route: 065
     Dates: start: 20120428
  3. VOLTARENE [Concomitant]
     Indication: ODYNOPHAGIA
     Route: 065
     Dates: start: 20120428
  4. OESTROPROGESTATIVE CONTRACEPTION [Concomitant]
  5. URBANYL [Concomitant]
     Indication: EPILEPSY
     Route: 065
     Dates: start: 201204

REACTIONS (29)
  - Stevens-Johnson syndrome [Recovered/Resolved with Sequelae]
  - Toxic epidermal necrolysis [Recovered/Resolved with Sequelae]
  - Nonspecific reaction [Recovered/Resolved with Sequelae]
  - Skin exfoliation [Recovered/Resolved with Sequelae]
  - Respiratory disorder [Recovered/Resolved]
  - Pruritus generalised [Recovered/Resolved with Sequelae]
  - Rash erythematous [Recovered/Resolved with Sequelae]
  - Odynophagia [Recovered/Resolved]
  - Hyperthermia [Recovered/Resolved]
  - Rash macular [Recovered/Resolved with Sequelae]
  - Blister [Recovered/Resolved with Sequelae]
  - Oxygen saturation decreased [Recovered/Resolved]
  - Erythema [Recovered/Resolved]
  - Conjunctival disorder [Recovered/Resolved with Sequelae]
  - Oral disorder [Recovered/Resolved]
  - Purpura [Recovered/Resolved]
  - Scab [Recovered/Resolved with Sequelae]
  - Genital lesion [Recovered/Resolved]
  - Atelectasis [Recovered/Resolved]
  - Mouth haemorrhage [Recovered/Resolved]
  - Tachypnoea [Recovered/Resolved]
  - Tachycardia [Unknown]
  - Keratitis [Not Recovered/Not Resolved]
  - Skin disorder [Recovered/Resolved with Sequelae]
  - Lung infection [Recovered/Resolved]
  - Respiratory distress [Recovered/Resolved]
  - Throat lesion [Not Recovered/Not Resolved]
  - Corneal lesion [Not Recovered/Not Resolved]
  - Skin hyperpigmentation [Not Recovered/Not Resolved]
